FAERS Safety Report 21395157 (Version 1)
Quarter: 2022Q3

REPORT INFORMATION
  Report Type: Spontaneous
  Country: JP (occurrence: JP)
  Receive Date: 20220930
  Receipt Date: 20220930
  Transmission Date: 20221027
  Serious: Yes (Hospitalization)
  Sender: FDA-Public Use
  Company Number: JP-STRIDES ARCOLAB LIMITED-2022SP012477

PATIENT
  Sex: Female
  Weight: 2.935 kg

DRUGS (8)
  1. ALPRAZOLAM [Suspect]
     Active Substance: ALPRAZOLAM
     Indication: Product used for unknown indication
     Dosage: UNK, (DOSAGE: MOTHER INITIALLY RECEIVED 0.4MG TWICE DAILY THEN FREQUENCY WAS REDUCED TO ONCE DAILY)
     Route: 064
  2. ALPRAZOLAM [Suspect]
     Active Substance: ALPRAZOLAM
     Dosage: UNK, (DOSAGE: MOTHER INITIALLY RECEIVED 0.4MG TWICE DAILY THEN FREQUENCY WAS REDUCED TO ONCE DAILY)
     Route: 063
  3. ETHYL LOFLAZEPATE [Suspect]
     Active Substance: ETHYL LOFLAZEPATE
     Indication: Product used for unknown indication
     Dosage: UNK, (PARENT DOSE: 1 MILLIGRAM ONCE DAILY)
     Route: 064
  4. ETHYL LOFLAZEPATE [Suspect]
     Active Substance: ETHYL LOFLAZEPATE
     Dosage: UNK, (PARENT DOSE: 1 MILLIGRAM)
     Route: 063
  5. SERTRALINE [Suspect]
     Active Substance: SERTRALINE HYDROCHLORIDE
     Indication: Product used for unknown indication
     Dosage: UNK, (PARENT DOSE: 50 MILLIGRAM)
     Route: 064
  6. SERTRALINE [Suspect]
     Active Substance: SERTRALINE HYDROCHLORIDE
     Dosage: UNK, (PARENT DOSE: 50 MILLIGRAM)
     Route: 063
  7. INSULIN ASPART [Suspect]
     Active Substance: INSULIN ASPART
     Indication: Product used for unknown indication
     Dosage: UNK, (PARENT DOSAGE: 3 TIMES A DAY)
     Route: 064
  8. DEXTROSE [Suspect]
     Active Substance: DEXTROSE
     Indication: Product used for unknown indication
     Dosage: UNK
     Route: 064

REACTIONS (5)
  - Neonatal tachypnoea [Unknown]
  - Use of accessory respiratory muscles [Unknown]
  - Drug withdrawal syndrome [Unknown]
  - Foetal exposure during pregnancy [Unknown]
  - Exposure via breast milk [Unknown]
